FAERS Safety Report 21552735 (Version 1)
Quarter: 2022Q4

REPORT INFORMATION
  Report Type: Spontaneous
  Country: US (occurrence: None)
  Receive Date: 20221104
  Receipt Date: 20221104
  Transmission Date: 20230113
  Serious: No
  Sender: FDA-Public Use
  Company Number: 2022A342034

PATIENT
  Sex: Female

DRUGS (2)
  1. TAGRISSO [Suspect]
     Active Substance: OSIMERTINIB
     Route: 048
  2. VIZIMPRO [Suspect]
     Active Substance: DACOMITINIB

REACTIONS (5)
  - Cardiac disorder [Unknown]
  - Skin mass [Unknown]
  - Diarrhoea [Unknown]
  - Erythema [Unknown]
  - Rash [Unknown]
